FAERS Safety Report 23547987 (Version 1)
Quarter: 2024Q1

REPORT INFORMATION
  Report Type: Spontaneous
  Country: ES (occurrence: ES)
  Receive Date: 20240221
  Receipt Date: 20240221
  Transmission Date: 20240410
  Serious: Yes (Death, Hospitalization, Other)
  Sender: FDA-Public Use
  Company Number: None

PATIENT
  Age: 55 Year
  Sex: Male

DRUGS (2)
  1. LEVETIRACETAM [Suspect]
     Active Substance: LEVETIRACETAM
     Indication: Epilepsy
     Dosage: LEVETIRACETAM (1167A)
     Route: 042
     Dates: start: 20231206, end: 20231213
  2. VALPROIC ACID [Suspect]
     Active Substance: VALPROIC ACID
     Indication: Epilepsy
     Dosage: VALPROIC ACID (3194A)
     Route: 042
     Dates: start: 20231210, end: 20231213

REACTIONS (1)
  - Thrombocytopenia [Fatal]

NARRATIVE: CASE EVENT DATE: 20231211
